FAERS Safety Report 13967750 (Version 1)
Quarter: 2017Q3

REPORT INFORMATION
  Report Type: Report from Study
  Country: US (occurrence: US)
  Receive Date: 20170914
  Receipt Date: 20170914
  Transmission Date: 20171128
  Serious: Yes (Hospitalization)
  Sender: FDA-Public Use
  Company Number: US-BAYER-2017-169401

PATIENT
  Age: 61 Year
  Sex: Female

DRUGS (6)
  1. GADOVIST [Suspect]
     Active Substance: GADOBUTROL
     Indication: PERINEURIAL CYST
     Dosage: UNK
     Dates: start: 2013
  2. GADOVIST [Suspect]
     Active Substance: GADOBUTROL
     Indication: NUCLEAR MAGNETIC RESONANCE IMAGING
     Dosage: UNK
     Dates: start: 2011
  3. MULTIHANCE [Suspect]
     Active Substance: GADOBENATE DIMEGLUMINE
  4. DOTAREM [Suspect]
     Active Substance: GADOTERATE MEGLUMINE
  5. GADOVIST [Suspect]
     Active Substance: GADOBUTROL
     Indication: NUCLEAR MAGNETIC RESONANCE IMAGING
     Dosage: UNK
     Dates: start: 201705
  6. OPTIMARK [Suspect]
     Active Substance: GADOVERSETAMIDE

REACTIONS (25)
  - Pulmonary granuloma [None]
  - Weight decreased [None]
  - Muscle atrophy [None]
  - Pain [None]
  - Bone pain [None]
  - Gingival bleeding [None]
  - Dysphagia [None]
  - Nontherapeutic agent urine positive [None]
  - Myalgia [None]
  - Formication [None]
  - Cognitive disorder [None]
  - Lacrimation increased [None]
  - Muscle spasms [None]
  - Skin tightness [None]
  - Musculoskeletal chest pain [None]
  - Dyspnoea [None]
  - Skin exfoliation [None]
  - Granuloma [None]
  - Toothache [None]
  - Arthralgia [None]
  - Joint contracture [None]
  - Hypoaesthesia [None]
  - Balance disorder [None]
  - Pruritus [None]
  - Alopecia [None]

NARRATIVE: CASE EVENT DATE: 201705
